FAERS Safety Report 25284266 (Version 3)
Quarter: 2025Q3

REPORT INFORMATION
  Report Type: Report from Study
  Country: EU (occurrence: EU)
  Receive Date: 20250508
  Receipt Date: 20250822
  Transmission Date: 20251020
  Serious: Yes (Other)
  Sender: NOVARTIS
  Company Number: EU-002147023-NVSC2024FR246875

PATIENT
  Sex: Female

DRUGS (1)
  1. KISQALI [Suspect]
     Active Substance: RIBOCICLIB SUCCINATE
     Indication: Hormone receptor positive HER2 negative breast cancer
     Dosage: 600 MG, QD
     Route: 048
     Dates: start: 20241118, end: 20250430

REACTIONS (3)
  - Neutropenia [Recovered/Resolved]
  - Leukopenia [Recovered/Resolved]
  - Hepatic cytolysis [Not Recovered/Not Resolved]

NARRATIVE: CASE EVENT DATE: 20241223
